FAERS Safety Report 17249904 (Version 1)
Quarter: 2020Q1

REPORT INFORMATION
  Report Type: Spontaneous
  Country: CH (occurrence: CH)
  Receive Date: 20200109
  Receipt Date: 20200109
  Transmission Date: 20200409
  Serious: Yes (Other)
  Sender: FDA-Public Use
  Company Number: CH-ABBVIE-19K-151-2963171-00

PATIENT
  Age: 47 Year
  Sex: Female

DRUGS (3)
  1. OXIS TURBOHALER 1 H2O [Concomitant]
     Indication: BRONCHIECTASIS
     Dosage: IN THE MORNING AND EVENING
     Route: 055
  2. SALBUTAMOL [Concomitant]
     Active Substance: ALBUTEROL
     Indication: PRODUCT USED FOR UNKNOWN INDICATION
     Route: 055
  3. HUMIRA [Suspect]
     Active Substance: ADALIMUMAB
     Indication: PYODERMA GANGRENOSUM
     Route: 058
     Dates: start: 201807

REACTIONS (3)
  - Off label use [Not Recovered/Not Resolved]
  - Obstructive airways disorder [Recovering/Resolving]
  - Haemophilus infection [Unknown]

NARRATIVE: CASE EVENT DATE: 201807
